FAERS Safety Report 5924147-3 (Version None)
Quarter: 2008Q4

REPORT INFORMATION
  Report Type: 
  Country: None (occurrence: None)
  Receive Date: 20081015
  Receipt Date: 20081008
  Transmission Date: 20090506
  Serious: Yes (Death)
  Sender: FDA-Public Use
  Company Number: 2008-184990-NL

PATIENT
  Sex: Male

DRUGS (2)
  1. DANAPAROID SODIUM [Suspect]
  2. ANTIBIOTICS [Concomitant]

REACTIONS (1)
  - DEATH [None]
